FAERS Safety Report 4603238-3 (Version None)
Quarter: 2005Q1

REPORT INFORMATION
  Report Type: 
  Country: None (occurrence: None)
  Receive Date: 20050308
  Receipt Date: 20050222
  Transmission Date: 20050727
  Serious: Yes (Death)
  Sender: FDA-Public Use
  Company Number: 2004AP05785

PATIENT
  Age: 58 Year
  Sex: Male

DRUGS (14)
  1. IRESSA [Suspect]
     Indication: NON-SMALL CELL LUNG CANCER
     Dosage: 250 MG DAILY PO
     Route: 048
     Dates: start: 20041026, end: 20041107
  2. IRESSA [Suspect]
     Indication: SQUAMOUS CELL CARCINOMA
     Dosage: 250 MG DAILY PO
     Route: 048
     Dates: start: 20041026, end: 20041107
  3. MS CONTIN [Concomitant]
  4. VOLTAREN [Concomitant]
  5. GASTROM [Concomitant]
  6. NAUZELIN [Concomitant]
  7. MAGNESIUM OXIDE [Concomitant]
  8. OMEPRAL [Concomitant]
  9. DUROTEP JANSSEN [Concomitant]
  10. LOPEMIN [Concomitant]
  11. CARBOPLATIN [Concomitant]
  12. PACLITAXEL [Concomitant]
  13. KETOPROFEN [Concomitant]
  14. VOLTAREN [Concomitant]

REACTIONS (7)
  - DIARRHOEA [None]
  - HEPATIC FUNCTION ABNORMAL [None]
  - INFECTION [None]
  - INTERSTITIAL LUNG DISEASE [None]
  - RENAL FAILURE ACUTE [None]
  - RESPIRATORY FAILURE [None]
  - SEPSIS [None]
